FAERS Safety Report 7248856-1 (Version None)
Quarter: 2011Q1

REPORT INFORMATION
  Report Type: 
  Country: None (occurrence: None)
  Receive Date: 20110121
  Receipt Date: 20110121
  Transmission Date: 20110831
  Serious: No
  Sender: FDA-Public Use
  Company Number: None

PATIENT
  Sex: Female
  Weight: 90 kg

DRUGS (2)
  1. CARBOPLATIN [Suspect]
     Dosage: 636 MG
  2. TAXOL [Suspect]
     Dosage: 344 MG

REACTIONS (1)
  - THROMBOCYTOPENIA [None]
